FAERS Safety Report 6229749-5 (Version None)
Quarter: 2009Q2

REPORT INFORMATION
  Report Type: 
  Country: None (occurrence: None)
  Receive Date: 20090615
  Receipt Date: 20090604
  Transmission Date: 20091009
  Serious: Yes (Other)
  Sender: FDA-Public Use
  Company Number: PHHY2009MX22348

PATIENT
  Age: 70 Year
  Sex: Female

DRUGS (2)
  1. DIOVAN HCT [Suspect]
     Indication: HYPERTENSION
     Dosage: 1.5 TABLET PER DAY
     Route: 048
     Dates: start: 20070801
  2. BI-EUGLUCON [Concomitant]
     Indication: DIABETES MELLITUS
     Dosage: 2 TABLETS PER DAY
     Route: 048

REACTIONS (3)
  - BLINDNESS [None]
  - FALL [None]
  - PARKINSON'S DISEASE [None]
